FAERS Safety Report 9411545 (Version 2)
Quarter: 2014Q2

REPORT INFORMATION
  Report Type: Spontaneous
  Country: CA (occurrence: CA)
  Receive Date: 20130722
  Receipt Date: 20140414
  Transmission Date: 20141212
  Serious: Yes (Other)
  Sender: FDA-Public Use
  Company Number: CA-ROCHE-1250849

PATIENT
  Age: 51 Year
  Sex: Female

DRUGS (6)
  1. XOLAIR [Suspect]
     Indication: ASTHMA
     Route: 058
     Dates: start: 20120417
  2. SYMBICORT [Concomitant]
  3. ALVESCO [Concomitant]
  4. SINGULAIR [Concomitant]
  5. PREDNISONE [Concomitant]
     Route: 048
  6. PREDNISONE [Concomitant]
     Dosage: INCREASED DOSE.
     Route: 048
     Dates: start: 20140328

REACTIONS (8)
  - Herpes zoster [Recovered/Resolved]
  - Pallor [Unknown]
  - Productive cough [Unknown]
  - Peak expiratory flow rate decreased [Unknown]
  - Dyspnoea exertional [Unknown]
  - Cough [Unknown]
  - Upper respiratory tract infection [Unknown]
  - Heart rate increased [Unknown]
